FAERS Safety Report 5118355-1 (Version None)
Quarter: 2006Q4

REPORT INFORMATION
  Report Type: 
  Country: None (occurrence: None)
  Receive Date: 20061002
  Receipt Date: 20060920
  Transmission Date: 20070319
  Serious: Yes (Hospitalization)
  Sender: FDA-Public Use
  Company Number: VE-AVENTIS-200619916GDDC

PATIENT
  Age: 31 Year
  Sex: Female
  Weight: 67 kg

DRUGS (5)
  1. DOCETAXEL [Suspect]
     Indication: BREAST CANCER
     Route: 042
     Dates: start: 20060712, end: 20060802
  2. DOLASETRON [Suspect]
     Indication: VOMITING
     Dosage: DOSE: 100 MG
     Route: 048
     Dates: start: 20060802, end: 20060802
  3. DOXORUBICIN [Suspect]
     Indication: BREAST CANCER
     Route: 042
     Dates: start: 20060712, end: 20060802
  4. CYCLOPHOSPHAMIDE [Suspect]
     Indication: BREAST CANCER
     Route: 042
     Dates: start: 20060712, end: 20060802
  5. DEXAMETHASONE TAB [Concomitant]
     Indication: PREMEDICATION
     Route: 042
     Dates: start: 20060801, end: 20060803

REACTIONS (5)
  - DEHYDRATION [None]
  - DIARRHOEA [None]
  - GASTRIC ATONY [None]
  - HYPOKALAEMIA [None]
  - VOMITING [None]
